FAERS Safety Report 5266699-5 (Version None)
Quarter: 2007Q1

REPORT INFORMATION
  Report Type: 
  Country: None (occurrence: None)
  Receive Date: 20070312
  Receipt Date: 20070306
  Transmission Date: 20070707
  Serious: Yes (Hospitalization, Other)
  Sender: FDA-Public Use
  Company Number: THQ2007A00118

PATIENT
  Age: 52 Year
  Sex: Female

DRUGS (20)
  1. ACTOS [Suspect]
     Indication: DIABETES MELLITUS NON-INSULIN-DEPENDENT
     Dosage: 45 MG (45 MG, 1 IN 1 D) PER ORAL
     Route: 048
  2. NITROGLYCERIN [Concomitant]
  3. ASTRIX (ACETYLSALICYLIC ACID) [Concomitant]
  4. CATAPRES [Concomitant]
  5. COVERSYL PLUS (INDAPAMIDE, PERINDOPRIL ERBUMINE) [Concomitant]
  6. DIAFORMIN (METFORMIN HYDROCHLORIDE) [Concomitant]
  7. DILTIAZEM [Concomitant]
  8. IMDUR [Concomitant]
  9. LANTUS [Concomitant]
  10. LIPITOR [Concomitant]
  11. LOSEC (OMEPRAZOLE SODIUM) [Concomitant]
  12. LOVAN (FLUOXETINE HYDROCHLORIDE) [Concomitant]
  13. NICORANDIL [Concomitant]
  14. NOVORAPID (INSULIN ASPART [Concomitant]
  15. PANAMAX (PARACETAMOL) [Concomitant]
  16. RHINOCORT [Concomitant]
  17. SALBUTAMOL [Concomitant]
  18. SERETIDE (FLUTICASONE PROPIONATE, SALMETEROL XINAFOATE) [Concomitant]
  19. TEMAZEPAM [Concomitant]
  20. FUROSEMIDE [Concomitant]

REACTIONS (2)
  - CARDIAC FAILURE [None]
  - PULMONARY OEDEMA [None]
